FAERS Safety Report 18724202 (Version 1)
Quarter: 2021Q1

REPORT INFORMATION
  Report Type: Spontaneous
  Country: US (occurrence: US)
  Receive Date: 20210111
  Receipt Date: 20210111
  Transmission Date: 20210419
  Serious: No
  Sender: FDA-Public Use
  Company Number: US-009507513-2012USA006950

PATIENT
  Sex: Female

DRUGS (3)
  1. JANUVIA [Suspect]
     Active Substance: SITAGLIPTIN PHOSPHATE
     Indication: GLYCOSYLATED HAEMOGLOBIN ABNORMAL
     Dosage: UNK
     Route: 048
     Dates: start: 2020
  2. LEVEMIR [Suspect]
     Active Substance: INSULIN DETEMIR
     Dosage: FLEX PEN; UNK
  3. NOVOLOG [Suspect]
     Active Substance: INSULIN ASPART
     Dosage: FLEX PEN; UNK

REACTIONS (1)
  - Blood glucose increased [Unknown]

NARRATIVE: CASE EVENT DATE: 2020
